FAERS Safety Report 17730059 (Version 1)
Quarter: 2020Q2

REPORT INFORMATION
  Report Type: Spontaneous
  Country: US (occurrence: US)
  Receive Date: 20200430
  Receipt Date: 20200430
  Transmission Date: 20200714
  Serious: Yes (Death)
  Sender: FDA-Public Use
  Company Number: None

PATIENT
  Age: 68 Year
  Sex: Female
  Weight: 98.55 kg

DRUGS (4)
  1. PROCRIT [Suspect]
     Active Substance: ERYTHROPOIETIN
     Indication: ANAEMIA
     Dosage: ?          QUANTITY:20000 INTERNATIONAL UNIT;OTHER FREQUENCY:AT TIME OF CHEMO;?
     Route: 042
     Dates: start: 20200330, end: 20200330
  2. THYROID [Concomitant]
     Active Substance: LEVOTHYROXINE\LIOTHYRONINE
  3. IRON [Concomitant]
     Active Substance: IRON
  4. BLOOD PRESSURE MED [Concomitant]

REACTIONS (6)
  - Gait disturbance [None]
  - Nausea [None]
  - Vomiting [None]
  - Dyspnoea [None]
  - Sudden death [None]
  - Confusional state [None]

NARRATIVE: CASE EVENT DATE: 20200411
